FAERS Safety Report 8808246 (Version 2)
Quarter: 2014Q1

REPORT INFORMATION
  Report Type: Spontaneous
  Country: US (occurrence: US)
  Receive Date: 20120926
  Receipt Date: 20140204
  Transmission Date: 20141002
  Serious: Yes (Other)
  Sender: FDA-Public Use
  Company Number: US-BIOGENIDEC-2012BI039281

PATIENT
  Age: 58 Year
  Sex: Female

DRUGS (2)
  1. TYSABRI [Suspect]
     Indication: MULTIPLE SCLEROSIS
     Route: 042
     Dates: start: 20120220, end: 20131016
  2. PREDNISONE [Concomitant]
     Indication: PREMEDICATION

REACTIONS (11)
  - Anaphylactic reaction [Recovered/Resolved]
  - Muscular weakness [Not Recovered/Not Resolved]
  - Cold sweat [Not Recovered/Not Resolved]
  - Menopause [Unknown]
  - Dysphonia [Unknown]
  - Malaise [Not Recovered/Not Resolved]
  - Chills [Not Recovered/Not Resolved]
  - Fatigue [Not Recovered/Not Resolved]
  - Aphonia [Recovered/Resolved]
  - Pain [Recovered/Resolved]
  - Depression [Recovered/Resolved]
